FAERS Safety Report 4428282-0 (Version None)
Quarter: 2004Q3

REPORT INFORMATION
  Report Type: 
  Country: None (occurrence: None)
  Receive Date: 20040816
  Receipt Date: 20040816
  Transmission Date: 20050211
  Serious: Yes (Other)
  Sender: FDA-Public Use
  Company Number: None

PATIENT
  Age: 53 Year
  Sex: Male
  Weight: 102.5129 kg

DRUGS (1)
  1. OXYCODONE HCL [Suspect]
     Dosage: 80 MG 2 BID
     Dates: start: 20040728, end: 20040813

REACTIONS (4)
  - COUGH [None]
  - DRUG EFFECT DECREASED [None]
  - PHARMACEUTICAL PRODUCT COMPLAINT [None]
  - RETCHING [None]
